FAERS Safety Report 18538830 (Version 1)
Quarter: 2020Q4

REPORT INFORMATION
  Report Type: Spontaneous
  Country: IN (occurrence: IN)
  Receive Date: 20201124
  Receipt Date: 20201124
  Transmission Date: 20210114
  Serious: Yes (Death)
  Sender: FDA-Public Use
  Company Number: NVSC2020IN312794

PATIENT
  Age: 67 Year
  Sex: Male

DRUGS (1)
  1. MEQSEL [Suspect]
     Active Substance: TRAMETINIB
     Indication: MALIGNANT MELANOMA
     Dosage: 2 MG, QD (TABLET)
     Route: 048
     Dates: start: 20201109, end: 20201111

REACTIONS (3)
  - Cardiac arrest [Fatal]
  - Malignant neoplasm progression [Fatal]
  - Malignant melanoma [Fatal]

NARRATIVE: CASE EVENT DATE: 20201111
